FAERS Safety Report 6557545-8 (Version None)
Quarter: 2010Q1

REPORT INFORMATION
  Report Type: 
  Country: None (occurrence: None)
  Receive Date: 20100129
  Receipt Date: 20100120
  Transmission Date: 20100710
  Serious: Yes (Other)
  Sender: FDA-Public Use
  Company Number: JP-ROCHE-681122

PATIENT
  Age: 50 Year
  Sex: Female

DRUGS (3)
  1. TAMIFLU [Suspect]
     Indication: ENCEPHALOPATHY
     Route: 048
     Dates: start: 20070101
  2. ANTIBIOTIC NOS [Suspect]
     Indication: DRUG USE FOR UNKNOWN INDICATION
     Route: 065
  3. ANTIBACTERIAL [Suspect]
     Indication: DRUG USE FOR UNKNOWN INDICATION
     Route: 065

REACTIONS (3)
  - RENAL DISORDER [None]
  - RENAL HAEMORRHAGE [None]
  - SHOCK HAEMORRHAGIC [None]
